FAERS Safety Report 4299643-8 (Version None)
Quarter: 2004Q1

REPORT INFORMATION
  Report Type: 
  Country: None (occurrence: None)
  Receive Date: 20040217
  Receipt Date: 20040217
  Transmission Date: 20041129
  Serious: Yes (Hospitalization)
  Sender: FDA-Public Use
  Company Number: None

PATIENT
  Age: 38 Year
  Sex: Male
  Weight: 57.3 kg

DRUGS (10)
  1. DEPAKOTE ER [Suspect]
     Indication: AFFECTIVE DISORDER
     Dosage: 500 MG PO TID
     Route: 048
  2. LEVOTHROID [Concomitant]
  3. NEXIUM [Concomitant]
  4. ZYPREXA [Concomitant]
  5. LOVASTATIN [Concomitant]
  6. NORVASC [Concomitant]
  7. VIOXX [Concomitant]
  8. PROMETHAZINE [Concomitant]
  9. LANTUS INSULIN [Concomitant]
  10. NOVOLOG [Concomitant]

REACTIONS (4)
  - AMMONIA INCREASED [None]
  - DIABETIC KETOACIDOSIS [None]
  - ENCEPHALOPATHY [None]
  - PANCREATITIS ACUTE [None]
